FAERS Safety Report 10757974 (Version 1)
Quarter: 2015Q1

REPORT INFORMATION
  Report Type: Spontaneous
  Country: US (occurrence: None)
  Receive Date: 20150202
  Receipt Date: 20150202
  Transmission Date: 20150721
  Serious: No
  Sender: FDA-Public Use
  Company Number: None

PATIENT
  Age: 55 Year
  Sex: Female
  Weight: 65.32 kg

DRUGS (1)
  1. VENLAFAXINE HCL [Suspect]
     Active Substance: VENLAFAXINE HYDROCHLORIDE
     Indication: DEPRESSION
     Dosage: 1 CAPSULE ONCE DAILY ORAL
     Route: 048
     Dates: start: 20150102, end: 20150123

REACTIONS (7)
  - Product quality issue [None]
  - Visual impairment [None]
  - Headache [None]
  - Product substitution issue [None]
  - Product formulation issue [None]
  - Vision blurred [None]
  - Dizziness [None]

NARRATIVE: CASE EVENT DATE: 20150123
